FAERS Safety Report 22150380 (Version 1)
Quarter: 2023Q1

REPORT INFORMATION
  Report Type: Spontaneous
  Country: US (occurrence: US)
  Receive Date: 20230329
  Receipt Date: 20230329
  Transmission Date: 20230418
  Serious: No
  Sender: FDA-Public Use
  Company Number: US-CORIUM, LLC-2023COR000022

PATIENT
  Age: 89 Year
  Sex: Male

DRUGS (2)
  1. ADLARITY [Suspect]
     Active Substance: DONEPEZIL HYDROCHLORIDE
     Indication: Dementia Alzheimer^s type
     Dosage: 5 MG
     Route: 062
     Dates: start: 202211
  2. ADLARITY [Suspect]
     Active Substance: DONEPEZIL HYDROCHLORIDE
     Indication: Dementia
     Dosage: 10 MG
     Route: 062
     Dates: start: 202212

REACTIONS (4)
  - Skin infection [Unknown]
  - Application site rash [Unknown]
  - Application site pruritus [Unknown]
  - Product adhesion issue [Unknown]
